FAERS Safety Report 5800687-2 (Version None)
Quarter: 2008Q3

REPORT INFORMATION
  Report Type: 
  Country: None (occurrence: None)
  Receive Date: 20080703
  Receipt Date: 20080625
  Transmission Date: 20090109
  Serious: Yes (Death, Life-Threatening, Hospitalization)
  Sender: FDA-Public Use
  Company Number: AT-ROCHE-572423

PATIENT
  Sex: Female
  Weight: 102.5 kg

DRUGS (12)
  1. XELODA [Suspect]
     Route: 048
     Dates: start: 20080528, end: 20080610
  2. ARIMIDEX [Concomitant]
  3. TEBOFORTAN [Concomitant]
  4. LASIX [Concomitant]
  5. 1 CONCOMITANT DRUG [Concomitant]
     Dosage: DRUG REPORTED AS KALI ORAL.
     Route: 048
  6. RAMIPRIL [Concomitant]
  7. SEROPRAM [Concomitant]
  8. RAMICOMP [Concomitant]
  9. NEXIUM [Concomitant]
  10. BERODUAL [Concomitant]
     Dosage: DRUG REPORTED AS BERODUAL SPRAY
  11. METOCLOPRAMIDE HYDROCHLORIDE [Concomitant]
  12. CALCIUM/VITAMIN D3 [Concomitant]

REACTIONS (4)
  - DISSEMINATED INTRAVASCULAR COAGULATION [None]
  - NEUTROPENIA [None]
  - SEPSIS [None]
  - THROMBOCYTOPENIA [None]
